FAERS Safety Report 6844937-2 (Version None)
Quarter: 2010Q3

REPORT INFORMATION
  Report Type: 
  Country: None (occurrence: None)
  Receive Date: 20100715
  Receipt Date: 20100709
  Transmission Date: 20110219
  Serious: Yes (Death, Other)
  Sender: FDA-Public Use
  Company Number: US-CELGENEUS-163-21880-10061894

PATIENT
  Sex: Female

DRUGS (2)
  1. REVLIMID [Suspect]
     Indication: MULTIPLE MYELOMA
     Route: 048
     Dates: start: 20100301, end: 20100601
  2. REVLIMID [Suspect]
     Route: 048
     Dates: start: 20091029, end: 20100101

REACTIONS (4)
  - CARDIAC AMYLOIDOSIS [None]
  - CARDIAC FAILURE [None]
  - RENAL AMYLOIDOSIS [None]
  - RENAL FAILURE [None]
